FAERS Safety Report 23749936 (Version 1)
Quarter: 2024Q2

REPORT INFORMATION
  Report Type: Spontaneous
  Country: US (occurrence: US)
  Receive Date: 20240417
  Receipt Date: 20240417
  Transmission Date: 20240716
  Serious: Yes (Other)
  Sender: FDA-Public Use
  Company Number: US-ROCHE-3535944

PATIENT
  Age: 67 Year
  Sex: Female
  Weight: 58.799 kg

DRUGS (12)
  1. CAPECITABINE [Suspect]
     Active Substance: CAPECITABINE
     Indication: Product used for unknown indication
     Route: 048
     Dates: start: 201903
  2. ESBRIET [Suspect]
     Active Substance: PIRFENIDONE
     Indication: Idiopathic pulmonary fibrosis
     Dosage: 801 MG THRICE IN A DAY
     Route: 048
  3. ALBUTEROL [Concomitant]
     Active Substance: ALBUTEROL
  4. LEVOTHYROXINE [Concomitant]
     Active Substance: LEVOTHYROXINE\LEVOTHYROXINE SODIUM
  5. TOPIRAMATE [Concomitant]
     Active Substance: TOPIRAMATE
  6. DICLOFENAC [Concomitant]
     Active Substance: DICLOFENAC
  7. PREGABALIN [Concomitant]
     Active Substance: PREGABALIN
  8. CALCIUM [Concomitant]
     Active Substance: CALCIUM
  9. SUMATRIPTAN [Concomitant]
     Active Substance: SUMATRIPTAN
  10. DICLOFENAC SODIUM [Concomitant]
     Active Substance: DICLOFENAC\DICLOFENAC SODIUM
  11. TRAMADOL [Concomitant]
     Active Substance: TRAMADOL\TRAMADOL HYDROCHLORIDE
  12. IPRATROPIUM [Concomitant]
     Active Substance: IPRATROPIUM

REACTIONS (8)
  - Incarcerated hernia [Unknown]
  - Pneumonia [Unknown]
  - Metastases to bone [Unknown]
  - Productive cough [Unknown]
  - Rhinorrhoea [Unknown]
  - Rhinitis allergic [Unknown]
  - Anaemia [Unknown]
  - Periodontal disease [Unknown]
